FAERS Safety Report 20071777 (Version 1)
Quarter: 2021Q4

REPORT INFORMATION
  Report Type: Spontaneous
  Country: US (occurrence: US)
  Receive Date: 20211116
  Receipt Date: 20211116
  Transmission Date: 20220304
  Serious: Yes (Other)
  Sender: FDA-Public Use
  Company Number: US-CIPLA LTD.-2021US07467

PATIENT

DRUGS (1)
  1. NAPROXEN [Suspect]
     Active Substance: NAPROXEN
     Indication: Product used for unknown indication
     Dosage: UNK, TWICE DAILY
     Route: 065

REACTIONS (2)
  - Pyelonephritis acute [Not Recovered/Not Resolved]
  - Renal papillary necrosis [Not Recovered/Not Resolved]
